FAERS Safety Report 6790049-6 (Version None)
Quarter: 2010Q2

REPORT INFORMATION
  Report Type: 
  Country: None (occurrence: None)
  Receive Date: 20100624
  Receipt Date: 20100618
  Transmission Date: 20101027
  Serious: Yes (Life-Threatening, Hospitalization, Other)
  Sender: FDA-Public Use
  Company Number: PHHY2010DE40190

PATIENT
  Age: 24 Year
  Sex: Male

DRUGS (8)
  1. LEPONEX [Suspect]
     Dosage: 50 MG DAILY
     Route: 048
     Dates: start: 20100308, end: 20100310
  2. LEPONEX [Suspect]
     Dosage: 100 MG DAILY
     Route: 048
     Dates: start: 20100311, end: 20100313
  3. LEPONEX [Suspect]
     Dosage: 150 MG DAILY
     Route: 048
     Dates: start: 20100314, end: 20100319
  4. LEPONEX [Suspect]
     Dosage: 250 MG DAILY
     Route: 048
     Dates: start: 20100320, end: 20100322
  5. SOLIAN [Concomitant]
     Dosage: 800 MG DAILY
     Route: 048
     Dates: start: 20090101, end: 20100314
  6. SOLIAN [Concomitant]
     Dosage: 600 MG DAILY
     Route: 048
     Dates: start: 20100315
  7. LORAZEPAM [Concomitant]
     Dosage: 2 MG DAILY
     Route: 048
     Dates: start: 20100201
  8. DIPIPERON [Concomitant]
     Dosage: 120 MG DAILY
     Route: 048
     Dates: start: 20100201

REACTIONS (9)
  - BLOOD CREATININE INCREASED [None]
  - C-REACTIVE PROTEIN INCREASED [None]
  - CHEST PAIN [None]
  - DECREASED APPETITE [None]
  - MYOCARDITIS [None]
  - PERICARDITIS [None]
  - PYREXIA [None]
  - TACHYCARDIA [None]
  - TROPONIN T INCREASED [None]
